FAERS Safety Report 12329145 (Version 2)
Quarter: 2016Q3

REPORT INFORMATION
  Report Type: Spontaneous
  Country: US (occurrence: US)
  Receive Date: 20160503
  Receipt Date: 20160713
  Transmission Date: 20161109
  Serious: No
  Sender: FDA-Public Use
  Company Number: US-009507513-1604USA017248

PATIENT
  Age: 23 Year
  Sex: Female
  Weight: 120.18 kg

DRUGS (1)
  1. NEXPLANON [Suspect]
     Active Substance: ETONOGESTREL
     Indication: CONTRACEPTION
     Dosage: UNK
     Route: 059
     Dates: start: 20160407, end: 20160426

REACTIONS (4)
  - Implant site infection [Recovered/Resolved]
  - Implant site mass [Recovered/Resolved]
  - Pyogenic granuloma [Unknown]
  - Implant site pain [Unknown]

NARRATIVE: CASE EVENT DATE: 201604
